FAERS Safety Report 11243405 (Version 1)
Quarter: 2015Q3

REPORT INFORMATION
  Report Type: Spontaneous
  Country: US (occurrence: None)
  Receive Date: 20150702
  Receipt Date: 20150702
  Transmission Date: 20151125
  Serious: Yes (Hospitalization)
  Sender: FDA-Public Use
  Company Number: None

PATIENT
  Age: 65 Year
  Sex: Male
  Weight: 60.65 kg

DRUGS (5)
  1. CETUXIMAB [Suspect]
     Active Substance: CETUXIMAB
     Indication: SQUAMOUS CELL CARCINOMA
     Route: 042
     Dates: start: 20141103, end: 20150622
  2. PD0332991 (PALBOCICLIB) [Suspect]
     Active Substance: PALBOCICLIB
     Indication: SQUAMOUS CELL CARCINOMA
     Route: 048
     Dates: start: 20141103, end: 20150621
  3. CEFTRIAXONE. [Concomitant]
     Active Substance: CEFTRIAXONE
  4. TRANSDERM SCOP [Concomitant]
     Active Substance: SCOPOLAMINE
  5. OXYCODONE [Concomitant]
     Active Substance: OXYCODONE

REACTIONS (2)
  - Device related infection [None]
  - Staphylococcal bacteraemia [None]

NARRATIVE: CASE EVENT DATE: 20150622
